FAERS Safety Report 6136378-0 (Version None)
Quarter: 2009Q1

REPORT INFORMATION
  Report Type: 
  Country: None (occurrence: None)
  Receive Date: 20090330
  Receipt Date: 20090319
  Transmission Date: 20090719
  Serious: Yes (Life-Threatening, Hospitalization, Other)
  Sender: FDA-Public Use
  Company Number: US-ROCHE-619267

PATIENT
  Age: 54 Year
  Sex: Female
  Weight: 126.1 kg

DRUGS (5)
  1. XELODA [Suspect]
     Indication: BREAST CANCER
     Route: 048
     Dates: start: 20090214, end: 20090218
  2. FENTANYL-25 [Concomitant]
     Indication: PAIN
     Dosage: FREQUENCY: Q 72
     Route: 054
     Dates: start: 20081201
  3. LASIX [Concomitant]
     Route: 048
     Dates: start: 20081201
  4. ZOMETA [Concomitant]
     Route: 042
     Dates: start: 20081001
  5. LEXAPRO [Concomitant]
     Indication: DEPRESSION

REACTIONS (3)
  - ARTERIOSPASM CORONARY [None]
  - MYOCARDIAL INFARCTION [None]
  - RESPIRATORY FAILURE [None]
